FAERS Safety Report 16896989 (Version 1)
Quarter: 2019Q4

REPORT INFORMATION
  Report Type: Spontaneous
  Country: ES (occurrence: ES)
  Receive Date: 20191009
  Receipt Date: 20191009
  Transmission Date: 20200122
  Serious: Yes (Death)
  Sender: FDA-Public Use
  Company Number: ES-ROCHE-2425575

PATIENT
  Age: 78 Year
  Sex: Male
  Weight: 88 kg

DRUGS (1)
  1. OBINUTUZUMAB. [Suspect]
     Active Substance: OBINUTUZUMAB
     Indication: CHRONIC LYMPHOCYTIC LEUKAEMIA
     Route: 042
     Dates: start: 20180416, end: 20181116

REACTIONS (1)
  - Meningitis bacterial [Fatal]

NARRATIVE: CASE EVENT DATE: 20190403
